APPROVED DRUG PRODUCT: TOBI PODHALER
Active Ingredient: TOBRAMYCIN
Strength: 28MG
Dosage Form/Route: POWDER;INHALATION
Application: N201688 | Product #001
Applicant: VIATRIS SPECIALTY LLC
Approved: Mar 22, 2013 | RLD: Yes | RS: Yes | Type: RX

PATENTS:
Patent 8869794 | Expires: Sep 12, 2028
Patent 10207066 | Expires: Nov 4, 2030